FAERS Safety Report 10206567 (Version 1)
Quarter: 2014Q2

REPORT INFORMATION
  Report Type: Spontaneous
  Country: US (occurrence: US)
  Receive Date: 20140530
  Receipt Date: 20140530
  Transmission Date: 20141212
  Serious: No
  Sender: FDA-Public Use
  Company Number: US-GLAXOSMITHKLINE-A1038120A

PATIENT
  Age: 33 Year
  Sex: Female
  Weight: 52 kg

DRUGS (3)
  1. FLOLAN [Suspect]
     Indication: PULMONARY ARTERIAL HYPERTENSION
     Dosage: 19NGKM CONTINUOUS
     Route: 042
     Dates: start: 20130625
  2. DRESSING [Suspect]
     Indication: PRODUCT USED FOR UNKNOWN INDICATION
  3. WARFARIN [Concomitant]

REACTIONS (3)
  - Application site irritation [Recovering/Resolving]
  - Application site haemorrhage [Recovering/Resolving]
  - Infusion site erythema [Recovering/Resolving]
